FAERS Safety Report 6982290-4 (Version None)
Quarter: 2010Q3

REPORT INFORMATION
  Report Type: 
  Country: None (occurrence: None)
  Receive Date: 20100914
  Receipt Date: 20091218
  Transmission Date: 20110219
  Serious: No
  Sender: FDA-Public Use
  Company Number: US-PFIZER INC-2009312505

PATIENT
  Sex: Female
  Weight: 77.1 kg

DRUGS (6)
  1. LYRICA [Suspect]
     Indication: INTERVERTEBRAL DISC PROTRUSION
     Dosage: 75 MG, 2X/DAY
     Dates: start: 20090910, end: 20091112
  2. METFORMIN [Concomitant]
     Dosage: UNK
  3. LISINOPRIL [Concomitant]
     Dosage: UNK
  4. SYNTHROID [Concomitant]
     Dosage: UNK
  5. GLUCOTROL [Concomitant]
     Dosage: UNK
  6. FISH OIL [Concomitant]
     Dosage: UNK

REACTIONS (5)
  - BURNING SENSATION [None]
  - LIP SWELLING [None]
  - PAIN [None]
  - PRURITUS [None]
  - ULCER [None]
